FAERS Safety Report 17503582 (Version 1)
Quarter: 2020Q1

REPORT INFORMATION
  Report Type: Spontaneous
  Country: FR (occurrence: FR)
  Receive Date: 20200305
  Receipt Date: 20200305
  Transmission Date: 20200409
  Serious: Yes (Other)
  Sender: FDA-Public Use
  Company Number: FR-CHEPLA-C20200873

PATIENT
  Age: 41 Year
  Sex: Female
  Weight: 58 kg

DRUGS (8)
  1. TAZOCILLINE [Suspect]
     Active Substance: PIPERACILLIN SODIUM\TAZOBACTAM SODIUM
     Indication: PYREXIA
     Route: 041
     Dates: start: 20200124, end: 20200210
  2. DEXAMETHASONE. [Suspect]
     Active Substance: DEXAMETHASONE
     Indication: LEUKAEMIA
     Dates: start: 202001
  3. PRIMPERAN [Concomitant]
     Active Substance: METOCLOPRAMIDE HYDROCHLORIDE
     Dates: start: 20200128, end: 20200201
  4. ZOPHREN [Concomitant]
     Active Substance: ONDANSETRON
     Dates: start: 20200128, end: 20200201
  5. ETOPOPHOS [Suspect]
     Active Substance: ETOPOSIDE PHOSPHATE
     Indication: ACUTE MYELOID LEUKAEMIA
     Route: 041
     Dates: start: 20200128, end: 20200201
  6. RASBURICASE [Suspect]
     Active Substance: RASBURICASE
     Indication: LEUKAEMIA
     Dates: start: 202001
  7. HYDREA [Suspect]
     Active Substance: HYDROXYUREA
     Indication: LEUKAEMIA
     Route: 065
     Dates: start: 202001, end: 20200128
  8. AMSALYO [Suspect]
     Active Substance: AMSACRINE
     Indication: ACUTE MYELOID LEUKAEMIA
     Route: 041
     Dates: start: 20200128, end: 20200201

REACTIONS (3)
  - Dermatitis bullous [Recovering/Resolving]
  - Condition aggravated [Recovering/Resolving]
  - Stomatitis [Recovering/Resolving]

NARRATIVE: CASE EVENT DATE: 202001
